FAERS Safety Report 8191357-7 (Version None)
Quarter: 2012Q1

REPORT INFORMATION
  Report Type: 
  Country: None (occurrence: None)
  Receive Date: 20120307
  Receipt Date: 20120302
  Transmission Date: 20120608
  Serious: Yes (Death, Hospitalization, Other)
  Sender: FDA-Public Use
  Company Number: US-CELGENEUS-163-21880-12030349

PATIENT
  Age: 61 Year
  Sex: Female

DRUGS (7)
  1. ALBUTEROL [Concomitant]
     Route: 065
  2. POTASSIUM CHLORIDE [Concomitant]
     Route: 065
  3. REVLIMID [Suspect]
  4. AMLODIPINE [Concomitant]
     Route: 065
  5. ONDANSETRON [Concomitant]
     Route: 065
  6. FILGRASTIM [Concomitant]
     Route: 065
  7. REVLIMID [Suspect]
     Dosage: 25 MILLIGRAM
     Route: 048
     Dates: start: 20111001

REACTIONS (5)
  - PYREXIA [None]
  - THROMBOCYTOPENIA [None]
  - PELVIC ABSCESS [None]
  - DYSPNOEA [None]
  - DEATH [None]
